FAERS Safety Report 11983511 (Version 11)
Quarter: 2017Q4

REPORT INFORMATION
  Report Type: Report from Study
  Country: US (occurrence: US)
  Receive Date: 20160201
  Receipt Date: 20171004
  Transmission Date: 20180320
  Serious: Yes (Hospitalization, Other)
  Sender: FDA-Public Use
  Company Number: US-JNJFOC-20160123086

PATIENT
  Age: 78 Year
  Sex: Female

DRUGS (22)
  1. LIPITOR [Concomitant]
     Active Substance: ATORVASTATIN CALCIUM
  2. IMBRUVICA [Suspect]
     Active Substance: IBRUTINIB
     Indication: MANTLE CELL LYMPHOMA
     Route: 048
     Dates: start: 20150729
  3. DOXORUBICIN [Concomitant]
     Active Substance: DOXORUBICIN
  4. IMBRUVICA [Suspect]
     Active Substance: IBRUTINIB
     Indication: NON-HODGKIN^S LYMPHOMA
     Route: 048
     Dates: start: 20150729
  5. CEFADROXIL. [Suspect]
     Active Substance: CEFADROXIL
     Indication: SKIN INFECTION
  6. HYDROCORTISONE. [Concomitant]
     Active Substance: HYDROCORTISONE
  7. ESTROGEN [Concomitant]
     Active Substance: ESTROGENS
  8. COLACE [Concomitant]
     Active Substance: DOCUSATE SODIUM
  9. BENADRYL [Concomitant]
     Active Substance: DIPHENHYDRAMINE HYDROCHLORIDE
  10. CYCLOPHOSPHAMIDE. [Concomitant]
     Active Substance: CYCLOPHOSPHAMIDE
  11. NEULASTA [Concomitant]
     Active Substance: PEGFILGRASTIM
  12. IMBRUVICA [Suspect]
     Active Substance: IBRUTINIB
     Indication: MANTLE CELL LYMPHOMA
     Route: 048
     Dates: start: 20150724
  13. CEFACLOR. [Suspect]
     Active Substance: CEFACLOR
     Indication: SKIN INFECTION
  14. METOPROLOL SUCCINATE. [Concomitant]
     Active Substance: METOPROLOL SUCCINATE
  15. ASPIRIN. [Concomitant]
     Active Substance: ASPIRIN
  16. DULOXETINE HCL [Concomitant]
     Active Substance: DULOXETINE HYDROCHLORIDE
  17. ENDOCET [Concomitant]
     Active Substance: ACETAMINOPHEN\OXYCODONE HYDROCHLORIDE
  18. TYLENOL [Concomitant]
     Active Substance: ACETAMINOPHEN
  19. ESTROGEL [Concomitant]
     Active Substance: ESTRADIOL
  20. IMBRUVICA [Suspect]
     Active Substance: IBRUTINIB
     Indication: NON-HODGKIN^S LYMPHOMA
     Route: 048
     Dates: start: 20150729
  21. IMBRUVICA [Suspect]
     Active Substance: IBRUTINIB
     Indication: NON-HODGKIN^S LYMPHOMA
     Route: 048
     Dates: start: 20150724
  22. IMBRUVICA [Suspect]
     Active Substance: IBRUTINIB
     Indication: MANTLE CELL LYMPHOMA
     Route: 048
     Dates: start: 20150729

REACTIONS (15)
  - Nerve injury [Unknown]
  - Rash macular [Unknown]
  - Skin mass [Unknown]
  - Transient ischaemic attack [Unknown]
  - Gastritis [Unknown]
  - Neuropathy peripheral [Unknown]
  - Cerebrovascular accident [Unknown]
  - Contusion [Unknown]
  - Dizziness [Recovered/Resolved]
  - Hypertension [Recovering/Resolving]
  - Abdominal discomfort [Unknown]
  - Squamous cell carcinoma [Unknown]
  - Pharyngeal paraesthesia [Unknown]
  - Post procedural infection [Unknown]
  - Paraesthesia [Unknown]

NARRATIVE: CASE EVENT DATE: 201507
